FAERS Safety Report 8142057-0 (Version None)
Quarter: 2012Q1

REPORT INFORMATION
  Report Type: 
  Country: None (occurrence: None)
  Receive Date: 20120103
  Receipt Date: 20110910
  Transmission Date: 20120608
  Serious: No
  Sender: FDA-Public Use
  Company Number: AE-2011-001480

PATIENT
  Age: 58 Year
  Sex: Female
  Weight: 58.0604 kg

DRUGS (7)
  1. INCIVEK [Suspect]
     Dosage: (3 IN 1 D)
     Dates: start: 20110904
  2. PEGINTERFERON [Concomitant]
  3. ATENOLOL [Concomitant]
  4. RIBAVIRIN [Concomitant]
  5. LUNESTA [Concomitant]
  6. FOSAMAX [Concomitant]
  7. LEVOTHYROXINE SODIUM [Concomitant]

REACTIONS (5)
  - HAEMORRHOIDS [None]
  - RASH [None]
  - DIARRHOEA [None]
  - ANORECTAL DISCOMFORT [None]
  - NAUSEA [None]
